FAERS Safety Report 8566540 (Version 5)
Quarter: 2014Q2

REPORT INFORMATION
  Report Type: Spontaneous
  Country: US (occurrence: None)
  Receive Date: 20120510
  Receipt Date: 20140501
  Transmission Date: 20141212
  Serious: Yes (Hospitalization)
  Sender: FDA-Public Use
  Company Number: JPI-P-021166

PATIENT
  Age: 65 Year
  Sex: Female
  Weight: 71.8 kg

DRUGS (2)
  1. XYREM [Suspect]
     Indication: NARCOLEPSY
     Dosage: SEE IMAGE
     Route: 048
     Dates: start: 20081229
  2. MULTIPLE UNSPECIFIED MEDICATIONS [Concomitant]

REACTIONS (19)
  - Restlessness [None]
  - Fall [None]
  - Hip fracture [None]
  - Upper limb fracture [None]
  - Infection [None]
  - Incorrect dose administered [None]
  - Dizziness [None]
  - Middle insomnia [None]
  - Nausea [None]
  - Abdominal discomfort [None]
  - Back pain [None]
  - Pain [None]
  - Fatigue [None]
  - Eye swelling [None]
  - Ocular hyperaemia [None]
  - Post procedural infection [None]
  - Knee deformity [None]
  - Muscular weakness [None]
  - Somnambulism [None]
